FAERS Safety Report 9374408 (Version 1)
Quarter: 2013Q2

REPORT INFORMATION
  Report Type: Report from Study
  Country: NL (occurrence: NL)
  Receive Date: 20130628
  Receipt Date: 20130628
  Transmission Date: 20140414
  Serious: Yes (Other)
  Sender: FDA-Public Use
  Company Number: PHHY2013NL066686

PATIENT
  Sex: Male

DRUGS (4)
  1. ZOMETA [Suspect]
     Indication: PROSTATE CANCER METASTATIC
     Dosage: 4 MG PER 100 ML, 1 PER 4 WEEKS
  2. ZOMETA [Suspect]
     Dosage: 4 MG PER 100 ML, 1 PER 4 WEEKS
     Dates: start: 20120828
  3. ZOMETA [Suspect]
     Dosage: 4 MG PER 100 ML, 1 PER 4 WEEKS
     Dates: start: 20130503
  4. ZOMETA [Suspect]
     Dosage: 4 MG PER 100 ML, 1 PER 4 WEEKS
     Dates: start: 20130529

REACTIONS (1)
  - Terminal state [Unknown]
